FAERS Safety Report 4779870-3 (Version None)
Quarter: 2005Q3

REPORT INFORMATION
  Report Type: 
  Country: None (occurrence: None)
  Receive Date: 20050914
  Receipt Date: 20040909
  Transmission Date: 20060218
  Serious: Yes (Hospitalization)
  Sender: FDA-Public Use
  Company Number: 163-20785-04090203

PATIENT
  Age: 54 Year
  Sex: Male

DRUGS (3)
  1. THALOMID [Suspect]
     Indication: MULTIPLE MYELOMA
     Dosage: 50 MG, QD, ORAL;  400 MG, QD, ORAL
     Route: 048
     Dates: start: 20030530, end: 20040601
  2. THALOMID [Suspect]
     Indication: MULTIPLE MYELOMA
     Dosage: 50 MG, QD, ORAL;  400 MG, QD, ORAL
     Route: 048
     Dates: start: 20040602
  3. DEXAMETHASONE [Suspect]
     Indication: MULTIPLE MYELOMA
     Dosage: 40 MG, QD X 4 DAYS EVERY 28 DAY CYCLE, ORAL
     Route: 048
     Dates: start: 20030530

REACTIONS (1)
  - CERVICAL VERTEBRAL FRACTURE [None]
